FAERS Safety Report 17045629 (Version 10)
Quarter: 2022Q3

REPORT INFORMATION
  Report Type: Report from Study
  Country: JP (occurrence: JP)
  Receive Date: 20191118
  Receipt Date: 20220823
  Transmission Date: 20221027
  Serious: Yes (Hospitalization, Other)
  Sender: FDA-Public Use
  Company Number: JP-ALEXION PHARMACEUTICALS INC.-A201917348

PATIENT
  Age: 7 Year
  Sex: Male

DRUGS (17)
  1. STRENSIQ [Suspect]
     Active Substance: ASFOTASE ALFA
     Indication: Hypophosphatasia
     Dosage: 2 MG/KG, TIW
     Route: 058
     Dates: start: 20150925, end: 20191122
  2. STRENSIQ [Suspect]
     Active Substance: ASFOTASE ALFA
     Dosage: 2 MG/KG, BIW
     Route: 058
     Dates: start: 20191125
  3. ALLELOCK [Concomitant]
     Active Substance: OLOPATADINE HYDROCHLORIDE
     Indication: Prophylaxis
     Dosage: 0.5 G, TIW
     Route: 048
     Dates: end: 20191122
  4. ALLELOCK [Concomitant]
     Active Substance: OLOPATADINE HYDROCHLORIDE
     Dosage: 0.5 G, BIW
     Route: 048
     Dates: start: 20191125
  5. PENTOSAN POLYSULFATE SODIUM [Concomitant]
     Active Substance: PENTOSAN POLYSULFATE SODIUM
     Indication: Prophylaxis
     Dosage: 1-2G, QD
     Route: 065
  6. BIOFERMIN                          /01617201/ [Concomitant]
     Indication: Hypophosphatasia
     Dosage: 0.3 G, TID
     Route: 048
  7. DANTRIUM [Concomitant]
     Active Substance: DANTROLENE SODIUM
     Indication: Hypophosphatasia
     Dosage: 0.47 DF, TID
     Route: 048
  8. EMLA                               /00675501/ [Concomitant]
     Indication: Prophylaxis
     Dosage: 2 DF, TIW
     Route: 065
     Dates: end: 20191122
  9. EMLA                               /00675501/ [Concomitant]
     Dosage: 2 DF, BIW
     Route: 065
     Dates: start: 20191125
  10. POTASSIUM GLUCONATE [Concomitant]
     Active Substance: POTASSIUM GLUCONATE
     Indication: Hypophosphatasia
     Dosage: 1.6 G, TID
     Route: 048
  11. HIRUDOID                           /00723701/ [Concomitant]
     Indication: Product used for unknown indication
     Dosage: 1-2G, BID
     Route: 065
  12. HYALURONATE SODIUM [Concomitant]
     Active Substance: HYALURONATE SODIUM
     Indication: Prophylaxis
     Dosage: A FEW DROPS, UNK
     Route: 065
     Dates: end: 20191025
  13. LEVOCARNITINE [Concomitant]
     Active Substance: LEVOCARNITINE
     Indication: Hypophosphatasia
     Dosage: 1.5 ML, TID
     Route: 048
  14. PHENOBAL                           /00023201/ [Concomitant]
     Indication: Hypophosphatasia
     Dosage: 0.3 G, BID
     Route: 048
  15. PYRIDOXAL [Concomitant]
     Active Substance: PYRIDOXAL
     Indication: Hypophosphatasia
     Dosage: 3.3 DF, TID
     Route: 048
  16. SOLITA-T 3G [Concomitant]
     Indication: Hypophosphatasia
     Dosage: 1 DF, QD
     Route: 048
     Dates: start: 20200626
  17. LEVOTHYROXINE SODIUM [Concomitant]
     Active Substance: LEVOTHYROXINE SODIUM
     Indication: Hypophosphatasia
     Dosage: 0.3 G, QD
     Route: 048

REACTIONS (7)
  - Bradycardia [Recovering/Resolving]
  - Heart rate decreased [Recovered/Resolved]
  - Hypertension [Recovered/Resolved]
  - Humerus fracture [Not Recovered/Not Resolved]
  - Hypercalciuria [Not Recovered/Not Resolved]
  - Musculoskeletal disorder [Unknown]
  - Condition aggravated [Unknown]

NARRATIVE: CASE EVENT DATE: 20191030
